FAERS Safety Report 9135403 (Version 1)
Quarter: 2013Q1

REPORT INFORMATION
  Report Type: Spontaneous
  Country: US (occurrence: US)
  Receive Date: 20130304
  Receipt Date: 20130304
  Transmission Date: 20140127
  Serious: No
  Sender: FDA-Public Use
  Company Number: US-ENDO PHARMACEUTICALS INC.-ENDC20110142

PATIENT
  Age: 44 Year
  Sex: Male

DRUGS (4)
  1. ENDOCET [Suspect]
     Indication: NEUROPATHY PERIPHERAL
     Dosage: 40/1300 MG
     Route: 048
     Dates: end: 20110704
  2. LIPITOR [Concomitant]
     Dosage: UNKNOWN
     Route: 048
  3. LYRICA [Concomitant]
     Dosage: UNKNOWN
     Route: 048
  4. NAPROXYN [Concomitant]
     Dosage: UNKNOWN
     Route: 048

REACTIONS (2)
  - Ulcer [Not Recovered/Not Resolved]
  - Dyspepsia [Not Recovered/Not Resolved]
